FAERS Safety Report 13587488 (Version 1)
Quarter: 2017Q2

REPORT INFORMATION
  Report Type: Spontaneous
  Country: US (occurrence: US)
  Receive Date: 20170526
  Receipt Date: 20170526
  Transmission Date: 20170830
  Serious: Yes (Other)
  Sender: FDA-Public Use
  Company Number: None

PATIENT
  Age: 39 Year
  Sex: Female
  Weight: 135 kg

DRUGS (6)
  1. BUPROPION HYDROCHLORIDE XL [Suspect]
     Active Substance: BUPROPION HYDROCHLORIDE
     Indication: DEPRESSION
     Dosage: ?          QUANTITY:1 TABLET(S);?
     Route: 048
     Dates: start: 20170512
  2. ESCITALOPRAM [Concomitant]
     Active Substance: ESCITALOPRAM OXALATE
  3. CALCIUM CITRATE [Concomitant]
     Active Substance: CALCIUM CITRATE
  4. OCCLUSAL MOUTH GUARD [Concomitant]
  5. RIZATRIPTAN. [Concomitant]
     Active Substance: RIZATRIPTAN
  6. MULTIVITAMIN [Concomitant]
     Active Substance: VITAMINS

REACTIONS (7)
  - Depression [None]
  - Product substitution issue [None]
  - Suicidal ideation [None]
  - Fatigue [None]
  - Anxiety [None]
  - Mood swings [None]
  - Tearfulness [None]

NARRATIVE: CASE EVENT DATE: 20170518
